FAERS Safety Report 6639881-X (Version None)
Quarter: 2010Q1

REPORT INFORMATION
  Report Type: 
  Country: None (occurrence: None)
  Receive Date: 20100318
  Receipt Date: 20100315
  Transmission Date: 20100710
  Serious: Yes (Hospitalization)
  Sender: FDA-Public Use
  Company Number: US-BRISTOL-MYERS SQUIBB COMPANY-14960272

PATIENT
  Age: 65 Year
  Sex: Female
  Weight: 77 kg

DRUGS (17)
  1. ETOPOSIDE [Suspect]
     Indication: SMALL CELL LUNG CANCER STAGE UNSPECIFIED
     Dosage: 29OCT09-03NOV09
     Route: 042
     Dates: start: 20091029, end: 20100108
  2. CISPLATIN [Suspect]
     Indication: SMALL CELL LUNG CANCER STAGE UNSPECIFIED
     Dosage: 29OCT09-03NOV09
     Route: 042
     Dates: start: 20091029, end: 20100108
  3. LORAZEPAM [Concomitant]
     Indication: PROPHYLAXIS OF NAUSEA AND VOMITING
     Route: 048
     Dates: start: 20091102
  4. PROCHLORPERAZINE EDISYLATE [Concomitant]
     Indication: PROPHYLAXIS OF NAUSEA AND VOMITING
     Dosage: Q6H
     Route: 048
     Dates: start: 20091102
  5. HYDROCHLOROTHIAZIDE [Concomitant]
     Dates: start: 19980101, end: 20091107
  6. METOPROLOL TARTRATE [Concomitant]
     Dates: start: 20070101, end: 20091107
  7. ONDANSETRON [Concomitant]
     Dosage: 02OCT09-ONG, 8MG, 29OCT09-29OCT09, 12MG, 30OCT09-30OCT09, 12MG, 31OCT09-31OCT09, 16MG
     Dates: start: 20091002, end: 20091031
  8. EZETIMIBE [Concomitant]
     Route: 048
     Dates: start: 20070101, end: 20091105
  9. OMEPRAZOLE [Concomitant]
     Dates: start: 20091016
  10. DEXAMETHASONE [Concomitant]
     Dates: start: 20091029, end: 20091029
  11. APREPITANT [Concomitant]
     Dosage: 29OCT09-29OCT09, 125MG, 30OCT09-31OCT09, 80MG
     Dates: start: 20091029, end: 20091031
  12. ALENDRONATE SODIUM [Concomitant]
     Dates: start: 19980101, end: 20091105
  13. MANNITOL [Concomitant]
     Dates: start: 20091029, end: 20091029
  14. SODIUM CHLORIDE [Concomitant]
     Dates: start: 20091029, end: 20091029
  15. POTASSIUM CHLORIDE [Concomitant]
     Dosage: 1 DF= 20, 20,40 MULTIEQUIVALENT. 29OCT09-29OCT09, 30OCT09-30OCT09,31OCT09-31OCT09
     Dates: start: 20091029, end: 20091031
  16. MAGNESIUM SULFATE [Concomitant]
     Indication: PROPHYLAXIS
     Dates: start: 20091029, end: 20091029
  17. CETIRIZINE HCL [Concomitant]
     Indication: SEASONAL ALLERGY
     Dates: start: 20090901

REACTIONS (3)
  - ABDOMINAL PAIN [None]
  - NAUSEA [None]
  - VOMITING [None]
